FAERS Safety Report 4274587-6 (Version None)
Quarter: 2004Q1

REPORT INFORMATION
  Report Type: 
  Country: None (occurrence: None)
  Receive Date: 20040115
  Receipt Date: 20040102
  Transmission Date: 20041129
  Serious: Yes (Disabling)
  Sender: FDA-Public Use
  Company Number: 2004000561

PATIENT
  Age: 49 Year
  Sex: Female
  Weight: 78 kg

DRUGS (2)
  1. ZELDOX (CAPSULES) (ZIPRASIDONE) [Suspect]
     Indication: ILL-DEFINED DISORDER
     Dosage: 80 MG (BID) ORAL
     Route: 048
     Dates: start: 20020712, end: 20020724
  2. ZOPICLONE (ZOPICLONE) [Concomitant]

REACTIONS (8)
  - ABDOMINAL PAIN UPPER [None]
  - ANXIETY [None]
  - DIZZINESS [None]
  - HEADACHE [None]
  - HYPERSENSITIVITY [None]
  - PSORIASIS [None]
  - SOCIAL AVOIDANT BEHAVIOUR [None]
  - TINNITUS [None]
